FAERS Safety Report 13581920 (Version 7)
Quarter: 2017Q4

REPORT INFORMATION
  Report Type: Spontaneous
  Country: AR (occurrence: AR)
  Receive Date: 20170525
  Receipt Date: 20171130
  Transmission Date: 20180320
  Serious: Yes (Hospitalization, Other)
  Sender: FDA-Public Use
  Company Number: AR-PFIZER INC-2017226521

PATIENT
  Age: 59 Year
  Sex: Female

DRUGS (6)
  1. ZOLEDRONIC ACID. [Concomitant]
     Active Substance: ZOLEDRONIC ACID
     Indication: OSTEOPOROSIS
     Dosage: UNK
  2. IBRANCE [Suspect]
     Active Substance: PALBOCICLIB
     Dosage: 125 MG, CYCLIC [DAILY (3/1 SCHEME)]
     Dates: start: 2017, end: 2017
  3. IBRANCE [Suspect]
     Active Substance: PALBOCICLIB
     Indication: BREAST CANCER METASTATIC
     Dosage: 125 MG, CYCLIC [DAILY (3/1 SCHEME)]
     Dates: start: 20170102, end: 2017
  4. IBRANCE [Suspect]
     Active Substance: PALBOCICLIB
     Dosage: 125 MG, CYCLIC [DAILY (3/1 SCHEME)]
     Dates: start: 20171115
  5. FULVESTRANT. [Concomitant]
     Active Substance: FULVESTRANT
     Dosage: UNK
  6. CALCIUM [Concomitant]
     Active Substance: CALCIUM
     Indication: OSTEOPOROSIS
     Dosage: UNK

REACTIONS (29)
  - Laboratory test abnormal [Recovered/Resolved]
  - Nerve compression [Recovered/Resolved]
  - Musculoskeletal pain [Recovered/Resolved]
  - Peripheral swelling [Recovered/Resolved]
  - Neoplasm progression [Unknown]
  - Muscle spasms [Unknown]
  - Rhinitis [Recovered/Resolved]
  - Somnolence [Unknown]
  - Headache [Unknown]
  - Abdominal rigidity [Recovered/Resolved]
  - Drug dose omission [Unknown]
  - White blood cell count decreased [Recovering/Resolving]
  - Viral infection [Recovered/Resolved]
  - Pyrexia [Not Recovered/Not Resolved]
  - Nausea [Unknown]
  - Decreased immune responsiveness [Not Recovered/Not Resolved]
  - Thrombosis [Recovered/Resolved]
  - Myositis [Recovering/Resolving]
  - Malaise [Unknown]
  - Dyspnoea [Recovered/Resolved]
  - Fatigue [Not Recovered/Not Resolved]
  - Tonsillitis [Recovered/Resolved]
  - Agitation [Not Recovered/Not Resolved]
  - Anaemia [Unknown]
  - Depressed mood [Unknown]
  - Vomiting [Recovered/Resolved]
  - Red blood cell count decreased [Not Recovered/Not Resolved]
  - Stomatitis [Not Recovered/Not Resolved]
  - Fall [Unknown]

NARRATIVE: CASE EVENT DATE: 2017
